FAERS Safety Report 18062917 (Version 1)
Quarter: 2020Q3

REPORT INFORMATION
  Report Type: Spontaneous
  Country: US (occurrence: US)
  Receive Date: 20200723
  Receipt Date: 20200723
  Transmission Date: 20201103
  Serious: No
  Sender: FDA-Public Use
  Company Number: US-IGSA-SR10009841

PATIENT
  Age: 60 Year
  Sex: Female
  Weight: 90.3 kg

DRUGS (32)
  1. PROTEIN [Concomitant]
     Active Substance: PROTEIN
  2. FLUTICASONE PROPIONATE. [Concomitant]
     Active Substance: FLUTICASONE PROPIONATE
  3. GABAPENTIN. [Concomitant]
     Active Substance: GABAPENTIN
  4. KLONOPIN [Concomitant]
     Active Substance: CLONAZEPAM
  5. GAMUNEX?C [Suspect]
     Active Substance: HUMAN IMMUNOGLOBULIN G
     Indication: HYPOGAMMAGLOBULINAEMIA
     Dosage: 45 G, Q.4WK.
     Route: 042
     Dates: start: 201912
  6. FLUDROCORTISONE ACETATE. [Concomitant]
     Active Substance: FLUDROCORTISONE ACETATE
  7. MUPIROCIN. [Concomitant]
     Active Substance: MUPIROCIN
  8. OMEPRAZOLE. [Concomitant]
     Active Substance: OMEPRAZOLE
  9. TRAMADOL HCL [Concomitant]
     Active Substance: TRAMADOL HYDROCHLORIDE
  10. PLAQUENIL                          /00072602/ [Concomitant]
     Active Substance: HYDROXYCHLOROQUINE DIPHOSPHATE
  11. IRON [Concomitant]
     Active Substance: IRON
     Indication: MINERAL SUPPLEMENTATION
  12. PROBIOTIC 10 [Concomitant]
     Active Substance: DIETARY SUPPLEMENT\PROBIOTICS
  13. HYDROCORTISONE. [Concomitant]
     Active Substance: HYDROCORTISONE
  14. LEVOTHYROXINE SODIUM. [Concomitant]
     Active Substance: LEVOTHYROXINE SODIUM
  15. MONTELUKAST SODIUM. [Concomitant]
     Active Substance: MONTELUKAST SODIUM
  16. CYMBALTA [Concomitant]
     Active Substance: DULOXETINE HYDROCHLORIDE
  17. RETAINE MGD [Concomitant]
     Active Substance: LIGHT MINERAL OIL\MINERAL OIL
  18. CHOLESTYRAMINE. [Concomitant]
     Active Substance: CHOLESTYRAMINE
  19. DEXILANT [Concomitant]
     Active Substance: DEXLANSOPRAZOLE
  20. ZENPEP [Concomitant]
     Active Substance: PANCRELIPASE AMYLASE\PANCRELIPASE LIPASE\PANCRELIPASE PROTEASE
  21. GAMUNEX?C [Suspect]
     Active Substance: HUMAN IMMUNOGLOBULIN G
     Dosage: 45 G, Q.4WK.
     Route: 042
     Dates: start: 201912
  22. AZELASTINE HCL [Concomitant]
     Active Substance: AZELASTINE HYDROCHLORIDE
  23. CULTURELLE [Concomitant]
     Active Substance: LACTOBACILLUS RHAMNOSUS
  24. RESTASIS [Concomitant]
     Active Substance: CYCLOSPORINE
  25. TIZANIDINE HCL [Concomitant]
     Active Substance: TIZANIDINE HYDROCHLORIDE
  26. VITAMIN D2 [Concomitant]
     Active Substance: ERGOCALCIFEROL
  27. WIXELA INHUB [Concomitant]
     Active Substance: FLUTICASONE PROPIONATE\SALMETEROL XINAFOATE
  28. FAMOTIDINE. [Concomitant]
     Active Substance: FAMOTIDINE
  29. FUROSEMIDE. [Concomitant]
     Active Substance: FUROSEMIDE
  30. FLOVENT HFA [Concomitant]
     Active Substance: FLUTICASONE PROPIONATE
  31. LINZESS [Concomitant]
     Active Substance: LINACLOTIDE
  32. TRULANCE [Concomitant]
     Active Substance: PLECANATIDE

REACTIONS (4)
  - Migraine [Recovered/Resolved]
  - Nausea [Recovered/Resolved]
  - Joint stiffness [Not Recovered/Not Resolved]
  - Headache [Recovered/Resolved]

NARRATIVE: CASE EVENT DATE: 201912
